FAERS Safety Report 19975361 (Version 4)
Quarter: 2025Q1

REPORT INFORMATION
  Report Type: Spontaneous
  Country: US (occurrence: US)
  Receive Date: 20211020
  Receipt Date: 20250108
  Transmission Date: 20250408
  Serious: No
  Sender: PFIZER
  Company Number: US-PFIZER INC-202101082643

PATIENT
  Age: 42 Year
  Sex: Female

DRUGS (2)
  1. IBRANCE [Suspect]
     Active Substance: PALBOCICLIB
     Dates: start: 20210514
  2. IBRANCE [Suspect]
     Active Substance: PALBOCICLIB

REACTIONS (4)
  - White blood cell count decreased [Unknown]
  - Fatigue [Unknown]
  - Sinusitis bacterial [Unknown]
  - Off label use [Unknown]
